FAERS Safety Report 5625262-4 (Version None)
Quarter: 2008Q1

REPORT INFORMATION
  Report Type: 
  Country: None (occurrence: None)
  Receive Date: 20080208
  Receipt Date: 20080123
  Transmission Date: 20080703
  Serious: Yes (Death, Other)
  Sender: FDA-Public Use
  Company Number: ENTC2008-0021

PATIENT
  Age: 73 Year
  Sex: Male

DRUGS (2)
  1. STALEVO 100 [Suspect]
     Indication: PARKINSON'S DISEASE
     Dosage: 2 TABLETS ORAL
     Route: 048
     Dates: start: 20060710, end: 20071211
  2. SIFROL [Concomitant]

REACTIONS (1)
  - MUSCLE RIGIDITY [None]
